FAERS Safety Report 9816261 (Version 3)
Quarter: 2014Q1

REPORT INFORMATION
  Report Type: Report from Study
  Country: ZA (occurrence: ZA)
  Receive Date: 20140114
  Receipt Date: 20140324
  Transmission Date: 20141002
  Serious: Yes (Death, Hospitalization)
  Sender: FDA-Public Use
  Company Number: PHHY2011ZA89037

PATIENT
  Age: 79 Year
  Sex: Female
  Weight: 66.6 kg

DRUGS (5)
  1. GLIVEC [Suspect]
     Indication: GASTROINTESTINAL STROMAL TUMOUR
     Dosage: 400 MG, DAILY
     Route: 048
     Dates: start: 20101123
  2. MORPHINE [Concomitant]
     Indication: PAIN
     Dosage: 10 MG, 4 HOURLY
     Route: 048
     Dates: start: 20140102
  3. MAXOLON [Concomitant]
     Indication: NAUSEA
     Dosage: 10 MG, 8 HOURLY
     Route: 048
     Dates: start: 201111
  4. HYDROCHLOORTHIAZIDE [Concomitant]
     Indication: HYPERTENSION
     Dosage: 12.5 MG, UNK
  5. SORBITOL [Concomitant]
     Indication: CONSTIPATION
     Dosage: 20 ML, DAILY

REACTIONS (8)
  - Death [Fatal]
  - Abdominal pain [Recovering/Resolving]
  - Vomiting [Recovered/Resolved]
  - Gastrointestinal stromal tumour [Unknown]
  - Malignant neoplasm progression [Unknown]
  - Mineral deficiency [Unknown]
  - Local swelling [Unknown]
  - Tremor [Unknown]
